FAERS Safety Report 9904886 (Version 1)
Quarter: 2014Q1

REPORT INFORMATION
  Report Type: Spontaneous
  Country: US (occurrence: None)
  Receive Date: 20140212
  Receipt Date: 20140212
  Transmission Date: 20141002
  Serious: Yes (Disabling)
  Sender: FDA-Public Use
  Company Number: None

PATIENT
  Age: 85 Year
  Sex: Female
  Weight: 68.04 kg

DRUGS (18)
  1. LEVAQUIN [Suspect]
     Indication: URINARY TRACT INFECTION
     Dates: start: 20130406, end: 20130407
  2. KEFLEX [Concomitant]
  3. VITAMIN D [Concomitant]
  4. NORCO [Concomitant]
  5. PREDNISONE [Concomitant]
  6. METFORMIN [Concomitant]
  7. POTASSIUM AND LASIX [Concomitant]
  8. DILTIAZEM [Concomitant]
  9. MEMANTINE HCL [Concomitant]
  10. ONE A DAY 50+ WOMEN [Concomitant]
  11. MEGA RED(CRILL OIL) [Concomitant]
  12. CALCIUM WITH VITAMIN D+ K [Concomitant]
  13. FIBER [Concomitant]
  14. PROBIOTIC [Concomitant]
  15. VITAMIN B COMPLEX [Concomitant]
  16. PECID COMPLETE [Concomitant]
  17. CRANBERRY CHEW [Concomitant]
  18. TUMS [Concomitant]

REACTIONS (4)
  - Adverse reaction [None]
  - Hypoaesthesia [None]
  - Neuropathy peripheral [None]
  - Peroneal nerve palsy [None]
